FAERS Safety Report 9040746 (Version 1)
Quarter: 2013Q1

REPORT INFORMATION
  Report Type: Report from Study
  Country: US (occurrence: US)
  Receive Date: 20130129
  Receipt Date: 20130129
  Transmission Date: 20140127
  Serious: No
  Sender: FDA-Public Use
  Company Number: US-ABBOTT-12P-163-0893638-00

PATIENT
  Age: 4 Year
  Sex: Female

DRUGS (5)
  1. HUMIRA 40 MG/ 0.8 ML PRE-FILLED SYRINGE [Suspect]
     Indication: JUVENILE IDIOPATHIC ARTHRITIS
     Dates: start: 20110928
  2. METHOTREXATE [Concomitant]
     Indication: PRODUCT USED FOR UNKNOWN INDICATION
     Dosage: 0.5 ML WEEKLY
  3. MOTRIN [Concomitant]
     Indication: EYE DISORDER
  4. STEROID DROPS [Concomitant]
     Indication: EYE DISORDER
     Dosage: BOTH EYES
  5. ATROPINE [Concomitant]
     Indication: EYE DISORDER
     Dosage: BOTH EYES DAILY

REACTIONS (1)
  - Injection site pain [Not Recovered/Not Resolved]
